FAERS Safety Report 21312042 (Version 1)
Quarter: 2022Q3

REPORT INFORMATION
  Report Type: Spontaneous
  Country: US (occurrence: None)
  Receive Date: 20220909
  Receipt Date: 20220909
  Transmission Date: 20221027
  Serious: No
  Sender: FDA-Public Use
  Company Number: US-ARIS GLOBAL-202203-0572

PATIENT
  Sex: Male

DRUGS (14)
  1. OXERVATE [Suspect]
     Active Substance: CENEGERMIN-BKBJ
     Indication: Neurotrophic keratopathy
     Route: 047
     Dates: start: 20220323
  2. ROCKLATAN [Concomitant]
     Active Substance: LATANOPROST\NETARSUDIL MESYLATE
     Dosage: 0.02-0.005
  3. GATIFLOXACIN [Concomitant]
     Active Substance: GATIFLOXACIN
  4. PREDNISOLONE-NEPAFENAC [Concomitant]
  5. CEPHALEXIN [Concomitant]
     Active Substance: CEPHALEXIN
     Dosage: 125 MG/5 ML
  6. REFRESH DIGITAL [Concomitant]
     Active Substance: CARBOXYMETHYLCELLULOSE SODIUM\GLYCERIN\POLYSORBATE 80
     Dosage: 0.5-1-0.5%
  7. LEVOTHYROXINE [Concomitant]
     Active Substance: LEVOTHYROXINE
  8. TESTOSTERONE [Concomitant]
     Active Substance: TESTOSTERONE
     Dosage: 1.25 G-1.62 PACKET
  9. ELDERBERRY ZINC [Concomitant]
     Dosage: 90 MG -15 MG
  10. VITAMINS [Concomitant]
     Active Substance: VITAMINS
  11. FISH OIL [Concomitant]
     Active Substance: FISH OIL
     Dosage: 100-160 MG
  12. THIAMINE HYDROCHLORIDE [Concomitant]
     Active Substance: THIAMINE HYDROCHLORIDE
  13. VITAMIN C [Concomitant]
     Active Substance: ASCORBIC ACID
  14. TIMOLOL MALEATE [Concomitant]
     Active Substance: TIMOLOL MALEATE

REACTIONS (5)
  - Eye pain [Unknown]
  - Dry eye [Unknown]
  - Eye irritation [Unknown]
  - Periorbital pain [Unknown]
  - Anxiety [Unknown]
